FAERS Safety Report 11473671 (Version 2)
Quarter: 2015Q4

REPORT INFORMATION
  Report Type: Spontaneous
  Country: US (occurrence: US)
  Receive Date: 20150908
  Receipt Date: 20151002
  Transmission Date: 20160304
  Serious: Yes (Other)
  Sender: FDA-Public Use
  Company Number: US-GILEAD-2015-0170645

PATIENT
  Age: 54 Year
  Sex: Female

DRUGS (9)
  1. BLACK COHOSH                       /01456801/ [Concomitant]
     Dosage: UNK, BID
     Route: 048
  2. IBUPROFEN. [Concomitant]
     Active Substance: IBUPROFEN
     Indication: PAIN
     Dosage: 800 MG, PRN
     Route: 048
  3. LOTENSIN                           /00371202/ [Concomitant]
     Dosage: 20 MG, QD
     Route: 048
  4. HARVONI [Suspect]
     Active Substance: LEDIPASVIR\SOFOSBUVIR
     Indication: CHRONIC HEPATITIS C
     Dosage: UNK
     Route: 065
     Dates: end: 201502
  5. ADDERALL [Concomitant]
     Active Substance: AMPHETAMINE ASPARTATE\AMPHETAMINE SULFATE\DEXTROAMPHETAMINE SACCHARATE\DEXTROAMPHETAMINE SULFATE
     Dosage: 20 MG, QD
     Route: 048
  6. COCONUT OIL [Concomitant]
     Active Substance: COCONUT OIL
     Dosage: UNK
     Route: 048
  7. FLONASE                            /00908302/ [Concomitant]
     Active Substance: MOMETASONE FUROATE
     Dosage: UNK UNK, QD
     Route: 045
  8. LEXAPRO [Concomitant]
     Active Substance: ESCITALOPRAM OXALATE
     Dosage: 10 MG, QD
  9. THERAGRAN M [Concomitant]
     Active Substance: VITAMINS
     Dosage: UNK, QD
     Route: 048

REACTIONS (10)
  - Hepatic encephalopathy [Unknown]
  - Confusional state [Recovering/Resolving]
  - Vision blurred [Recovering/Resolving]
  - Disturbance in attention [Recovering/Resolving]
  - Muscular weakness [Recovering/Resolving]
  - Asthenia [Recovering/Resolving]
  - Somnolence [Recovering/Resolving]
  - Fatigue [Recovering/Resolving]
  - Memory impairment [Recovering/Resolving]
  - Headache [Recovering/Resolving]
